FAERS Safety Report 8777887 (Version 2)
Quarter: 2012Q4

REPORT INFORMATION
  Report Type: 
  Country: US (occurrence: US)
  Receive Date: 20120912
  Receipt Date: 20120913
  Transmission Date: 20130627
  Serious: Yes (Hospitalization, Other)
  Sender: FDA-Public Use
  Company Number: PHEH2012US017724

PATIENT
  Sex: Male
  Weight: 90.7 kg

DRUGS (1)
  1. AREDIA [Suspect]
     Indication: MULTIPLE MYELOMA
     Dosage: 90 mg, QMO
     Route: 042
     Dates: start: 1999, end: 200203

REACTIONS (7)
  - Febrile neutropenia [Unknown]
  - Clavicle fracture [Unknown]
  - Bronchitis [Unknown]
  - Cough [Unknown]
  - Sinusitis [Unknown]
  - Engraftment syndrome [Unknown]
  - Fatigue [Unknown]
